FAERS Safety Report 8446905-6 (Version None)
Quarter: 2012Q2

REPORT INFORMATION
  Report Type: 
  Country: None (occurrence: None)
  Receive Date: 20120612
  Receipt Date: 20120612
  Transmission Date: 20120825
  Serious: Yes (Life-Threatening, Other)
  Sender: FDA-Public Use
  Company Number: None

PATIENT
  Age: 45 Year
  Sex: Female
  Weight: 82.5547 kg

DRUGS (2)
  1. GILDESS FE 1/20 [Suspect]
     Indication: MENSTRUAL CYCLE MANAGEMENT
     Dosage: 1 TABLET EVERY DAY PO
     Route: 048
     Dates: start: 20120527, end: 20120609
  2. GILDESS FE 1/20 [Suspect]
     Indication: CONTRACEPTION
     Dosage: 1 TABLET EVERY DAY PO
     Route: 048
     Dates: start: 20120527, end: 20120609

REACTIONS (6)
  - DEPRESSION [None]
  - PELVIC PAIN [None]
  - HEADACHE [None]
  - MOOD ALTERED [None]
  - WEIGHT INCREASED [None]
  - SUICIDAL IDEATION [None]
